FAERS Safety Report 21408518 (Version 2)
Quarter: 2022Q4

REPORT INFORMATION
  Report Type: Spontaneous
  Country: AR (occurrence: None)
  Receive Date: 20221004
  Receipt Date: 20221013
  Transmission Date: 20230112
  Serious: Yes (Other)
  Sender: FDA-Public Use
  Company Number: AR-ROCHE-2976672

PATIENT
  Age: 32 Year
  Sex: Female

DRUGS (1)
  1. ACTEMRA [Suspect]
     Active Substance: TOCILIZUMAB
     Indication: Takayasu^s arteritis
     Route: 058
     Dates: start: 202105

REACTIONS (3)
  - Peripheral artery occlusion [Unknown]
  - Proteinuria [Not Recovered/Not Resolved]
  - Maternal exposure during pregnancy [Unknown]
